FAERS Safety Report 18526841 (Version 1)
Quarter: 2020Q4

REPORT INFORMATION
  Report Type: Spontaneous
  Country: DK (occurrence: DK)
  Receive Date: 20201120
  Receipt Date: 20201120
  Transmission Date: 20210114
  Serious: Yes (Hospitalization)
  Sender: FDA-Public Use
  Company Number: DK-TEVA-2020-DK-1850178

PATIENT
  Age: 24 Year
  Sex: Male

DRUGS (5)
  1. OLANZAPIN ^ACTAVIS^ [Suspect]
     Active Substance: OLANZAPINE
     Indication: SCHIZOPHRENIA
     Dosage: STRENGTH: 10 MG.?DOSAGE: 1 TABLET MORNING, 2 TABLETS NIGHT.
     Route: 048
     Dates: start: 202001, end: 20201012
  2. OLANZAPIN ^ACTAVIS^ [Suspect]
     Active Substance: OLANZAPINE
     Indication: SCHIZOPHRENIA
     Dosage: STRENGTH: 5 MG.
     Route: 048
     Dates: start: 202005, end: 20201012
  3. ZYPREXA [Suspect]
     Active Substance: OLANZAPINE
     Indication: SCHIZOPHRENIA
     Dosage: STRENGTH:  10 MG.
     Route: 048
     Dates: start: 201911, end: 20200709
  4. PANTOPRAZOL ^2CARE4^ [Concomitant]
     Indication: GASTROOESOPHAGEAL REFLUX DISEASE
     Dosage: STRENGTH: 40 MG.
     Route: 048
     Dates: start: 20200226
  5. MOVICOL [Concomitant]
     Active Substance: POLYETHYLENE GLYCOL 3350\POTASSIUM CHLORIDE\SODIUM BICARBONATE\SODIUM CHLORIDE
     Indication: CONSTIPATION
     Dosage: STRENGTH: UNKNOWN, 1 DOSAGE FORMS
     Route: 048

REACTIONS (2)
  - Ketoacidosis [Recovered/Resolved]
  - Type 2 diabetes mellitus [Not Recovered/Not Resolved]

NARRATIVE: CASE EVENT DATE: 2020
